FAERS Safety Report 6293693-8 (Version None)
Quarter: 2009Q3

REPORT INFORMATION
  Report Type: 
  Country: None (occurrence: None)
  Receive Date: 20090730
  Receipt Date: 20090727
  Transmission Date: 20100115
  Serious: Yes (Hospitalization)
  Sender: FDA-Public Use
  Company Number: 1000007775

PATIENT
  Age: 20 Year
  Sex: Female

DRUGS (8)
  1. LEXAPRO [Suspect]
     Indication: ANXIETY
     Dosage: 10 MG (10 MG, 1 IN  1D), ORAL
     Route: 048
     Dates: start: 20090101, end: 20090617
  2. LEXAPRO [Suspect]
     Indication: STRESS
     Dosage: 10 MG (10 MG, 1 IN  1D), ORAL
     Route: 048
     Dates: start: 20090101, end: 20090617
  3. LEXAPRO [Suspect]
     Indication: ANXIETY
     Dosage: 5 MG (5 MG, 1 IN 1 D), ORAL
     Route: 048
     Dates: start: 20090618, end: 20090622
  4. LEXAPRO [Suspect]
     Indication: STRESS
     Dosage: 5 MG (5 MG, 1 IN 1 D), ORAL
     Route: 048
     Dates: start: 20090618, end: 20090622
  5. SPIRONOLACTONE [Concomitant]
  6. SYNTHROID [Concomitant]
  7. MIRCETTE [Concomitant]
  8. ALBUTEROL (INHALANT) [Concomitant]

REACTIONS (4)
  - APHASIA [None]
  - HEADACHE [None]
  - MOVEMENT DISORDER [None]
  - MUSCULAR WEAKNESS [None]
